FAERS Safety Report 9311889 (Version 1)
Quarter: 2013Q2

REPORT INFORMATION
  Report Type: Report from Study
  Country: FR (occurrence: FR)
  Receive Date: 20130528
  Receipt Date: 20130528
  Transmission Date: 20140414
  Serious: Yes (Hospitalization)
  Sender: FDA-Public Use
  Company Number: PHHY2013FR053042

PATIENT
  Age: 76 Year
  Sex: Female

DRUGS (6)
  1. ACLASTA [Suspect]
     Indication: OSTEOPOROSIS
     Dosage: UNK
     Route: 042
     Dates: start: 201202
  2. COZAAR [Concomitant]
     Dosage: UNK
     Dates: start: 2000, end: 2012
  3. ELISOR [Concomitant]
     Dosage: UNK
     Dates: start: 2000
  4. OROCAL [Concomitant]
     Dosage: UNK
     Dates: start: 2012, end: 2012
  5. VITAMIN D [Concomitant]
     Dosage: UNK
     Dates: start: 2012
  6. OSTRAM [Concomitant]
     Dosage: UNK
     Dates: start: 2012

REACTIONS (1)
  - Cerebrovascular accident [Unknown]
